FAERS Safety Report 7671308-1 (Version None)
Quarter: 2011Q3

REPORT INFORMATION
  Report Type: 
  Country: None (occurrence: None)
  Receive Date: 20110808
  Receipt Date: 20110808
  Transmission Date: 20111222
  Serious: Yes (Hospitalization)
  Sender: FDA-Public Use
  Company Number: None

PATIENT
  Age: 56 Year
  Sex: Male
  Weight: 97.98 kg

DRUGS (5)
  1. AMLODIPINE [Concomitant]
  2. ENALAPRIL MALEATE [Concomitant]
  3. METOPROLOL TARTRATE [Concomitant]
  4. SULFAMETHOXAZOLE AND TRIMETHOPRIM [Suspect]
     Indication: ANTIFUNGAL PROPHYLAXIS
     Dosage: 1 PO QDAY
     Route: 048
     Dates: start: 20110605
  5. WARFARIN SODIUM [Concomitant]

REACTIONS (6)
  - HEADACHE [None]
  - REFUSAL OF TREATMENT BY PATIENT [None]
  - DIARRHOEA [None]
  - COUGH [None]
  - RHABDOMYOLYSIS [None]
  - TUBULOINTERSTITIAL NEPHRITIS [None]
